FAERS Safety Report 10498323 (Version 1)
Quarter: 2014Q4

REPORT INFORMATION
  Report Type: Spontaneous
  Country: DE (occurrence: DE)
  Receive Date: 20141006
  Receipt Date: 20141006
  Transmission Date: 20150528
  Serious: Yes (Other)
  Sender: FDA-Public Use
  Company Number: GXKR2014DE003686

PATIENT
  Sex: Female

DRUGS (1)
  1. LEFLUNOMID - 1 A PHARMA [Suspect]
     Active Substance: LEFLUNOMIDE
     Indication: RHEUMATIC DISORDER
     Dosage: 20 MG, QD
     Route: 048
     Dates: start: 2010

REACTIONS (2)
  - Choking sensation [Recovering/Resolving]
  - Cough [Recovering/Resolving]
